FAERS Safety Report 4329606-5 (Version None)
Quarter: 2004Q2

REPORT INFORMATION
  Report Type: 
  Country: None (occurrence: None)
  Receive Date: 20040401
  Receipt Date: 20040322
  Transmission Date: 20050107
  Serious: Yes (Hospitalization)
  Sender: FDA-Public Use
  Company Number: FR-ROCHE-362292

PATIENT
  Age: 41 Year
  Sex: Male

DRUGS (10)
  1. PEGASYS [Suspect]
     Indication: HEPATITIS C
     Dosage: FORMULATION REPORTED AS INJECTABLE SOLUTION.
     Route: 058
     Dates: start: 20030811, end: 20040212
  2. COPEGUS [Suspect]
     Indication: HEPATITIS C
     Route: 048
     Dates: start: 20030811, end: 20040212
  3. SUBUTEX [Concomitant]
     Dates: start: 20030315
  4. ATARAX [Concomitant]
  5. AOTAL [Concomitant]
  6. EQUANIL [Concomitant]
  7. CELEBREX [Concomitant]
  8. MOPRAL [Concomitant]
  9. ATENOLOL [Concomitant]
  10. TERCIAN [Concomitant]

REACTIONS (6)
  - ANAEMIA [None]
  - ANAEMIA MACROCYTIC [None]
  - HYPOTHYROIDISM [None]
  - MACROCYTOSIS [None]
  - REFUSAL OF TREATMENT BY PATIENT [None]
  - THROMBOCYTOPENIA [None]
